FAERS Safety Report 8372183-2 (Version None)
Quarter: 2012Q2

REPORT INFORMATION
  Report Type: 
  Country: None (occurrence: None)
  Receive Date: 20120521
  Receipt Date: 20120509
  Transmission Date: 20120825
  Serious: Yes (Hospitalization)
  Sender: FDA-Public Use
  Company Number: BR-BIOGENIDEC-2009BI007293

PATIENT
  Sex: Female
  Weight: 54 kg

DRUGS (6)
  1. UNSPECIFIED MEDICINE [Concomitant]
     Indication: PAIN
  2. GABAPENTIN [Concomitant]
     Indication: SYNCOPE
     Dates: end: 20110101
  3. GABAPENTIN [Concomitant]
     Indication: CONVULSION
     Dates: end: 20110101
  4. CITALOPRAM HYDROBROMIDE [Concomitant]
     Indication: DEPRESSION
     Dates: start: 20070101
  5. AVONEX [Suspect]
     Indication: MULTIPLE SCLEROSIS
     Route: 030
     Dates: start: 20060101
  6. FLU VACCINE [Concomitant]

REACTIONS (44)
  - HAEMORRHOID OPERATION [None]
  - BALANCE DISORDER [None]
  - ABDOMINAL DISTENSION [None]
  - MUSCULAR WEAKNESS [None]
  - INTESTINAL VARICES [None]
  - NAIL DISCOLOURATION [None]
  - NERVOUSNESS [None]
  - OROPHARYNGEAL PAIN [None]
  - PRURITUS [None]
  - MULTIPLE SCLEROSIS RELAPSE [None]
  - HYPOTHERMIA [None]
  - VISION BLURRED [None]
  - TRICHOTILLOMANIA [None]
  - ONYCHOCLASIS [None]
  - ARTHRALGIA [None]
  - BONE PAIN [None]
  - OSTEOPOROSIS [None]
  - BACK PAIN [None]
  - TREMOR [None]
  - WEIGHT INCREASED [None]
  - HAEMORRHOIDS [None]
  - NASOPHARYNGITIS [None]
  - PAIN IN EXTREMITY [None]
  - NECK PAIN [None]
  - CATARACT [None]
  - SKIN DISCOLOURATION [None]
  - FATIGUE [None]
  - HEADACHE [None]
  - DEAFNESS UNILATERAL [None]
  - EYE PAIN [None]
  - HEAD INJURY [None]
  - SENSORY DISTURBANCE [None]
  - PAIN [None]
  - DEPRESSED MOOD [None]
  - MYALGIA [None]
  - SWELLING FACE [None]
  - STRESS URINARY INCONTINENCE [None]
  - VISUAL ACUITY REDUCED [None]
  - FALL [None]
  - SWELLING [None]
  - PHOTOSENSITIVITY REACTION [None]
  - OSTEOPENIA [None]
  - GAIT DISTURBANCE [None]
  - MOOD ALTERED [None]
